FAERS Safety Report 5776835-X (Version None)
Quarter: 2008Q2

REPORT INFORMATION
  Report Type: 
  Country: None (occurrence: None)
  Receive Date: 20080618
  Receipt Date: 20080610
  Transmission Date: 20081010
  Serious: Yes (Disabling)
  Sender: FDA-Public Use
  Company Number: US-WATSON-2008-03562

PATIENT
  Age: 57 Year
  Sex: Female

DRUGS (2)
  1. MORPHINE SULFATE (WATSON LABORATORIES) [Suspect]
     Indication: BACK PAIN
     Route: 037
  2. DILAUDID [Suspect]
     Indication: BACK PAIN
     Route: 037

REACTIONS (1)
  - SCOLIOSIS [None]
